FAERS Safety Report 17202083 (Version 1)
Quarter: 2019Q4

REPORT INFORMATION
  Report Type: Spontaneous
  Country: US (occurrence: US)
  Receive Date: 20191226
  Receipt Date: 20191226
  Transmission Date: 20200122
  Serious: No
  Sender: FDA-Public Use
  Company Number: US-HORIZON-PEN-1043-2019

PATIENT
  Age: 63 Year
  Sex: Female

DRUGS (2)
  1. PENNSAID [Suspect]
     Active Substance: DICLOFENAC SODIUM
     Indication: KNEE OPERATION
     Dosage: AS NEEDED
     Dates: start: 2017, end: 201911
  2. LORTAB [Concomitant]
     Active Substance: ACETAMINOPHEN\HYDROCODONE BITARTRATE
     Dosage: 10 MG DAILY

REACTIONS (4)
  - Intentional product misuse [Unknown]
  - Prescription drug used without a prescription [Unknown]
  - Off label use [Unknown]
  - Glycosylated haemoglobin increased [Unknown]
